FAERS Safety Report 10208774 (Version 2)
Quarter: 2014Q2

REPORT INFORMATION
  Report Type: Report from Study
  Country: US (occurrence: US)
  Receive Date: 20140530
  Receipt Date: 20140606
  Transmission Date: 20141212
  Serious: Yes (Death, Hospitalization)
  Sender: FDA-Public Use
  Company Number: US-JNJFOC-20140519645

PATIENT
  Age: 82 Year
  Sex: Male
  Weight: 86 kg

DRUGS (6)
  1. IMBRUVICA [Suspect]
     Indication: MANTLE CELL LYMPHOMA
     Route: 048
     Dates: start: 20140219, end: 201404
  2. IMBRUVICA [Suspect]
     Indication: MANTLE CELL LYMPHOMA
     Route: 048
     Dates: start: 201404, end: 20140424
  3. EXJADE [Concomitant]
     Indication: IRON OVERLOAD
     Dates: end: 201404
  4. ARANESP [Concomitant]
     Indication: ANAEMIA
  5. REVLIMID [Concomitant]
     Indication: MANTLE CELL LYMPHOMA
  6. RITUXAN [Concomitant]
     Indication: MANTLE CELL LYMPHOMA

REACTIONS (18)
  - Cerebral haemorrhage [Fatal]
  - Anaemia [Recovering/Resolving]
  - Thrombocytopenia [Recovering/Resolving]
  - Rash [Recovering/Resolving]
  - Pneumonia [Recovering/Resolving]
  - Dizziness [Unknown]
  - Vomiting [Unknown]
  - Diarrhoea [Unknown]
  - Weight decreased [Not Recovered/Not Resolved]
  - Dysphonia [Recovered/Resolved]
  - Blood urea increased [Unknown]
  - Urinary tract infection [Unknown]
  - Blood creatinine increased [Unknown]
  - Oral herpes [Unknown]
  - Fatigue [Unknown]
  - Asthenia [Unknown]
  - Pyrexia [Unknown]
  - Dehydration [Unknown]
